FAERS Safety Report 12893294 (Version 1)
Quarter: 2016Q4

REPORT INFORMATION
  Report Type: Spontaneous
  Country: US (occurrence: US)
  Receive Date: 20161027
  Receipt Date: 20161027
  Transmission Date: 20170207
  Serious: No
  Sender: FDA-Public Use
  Company Number: None

PATIENT
  Age: 81 Year
  Sex: Male

DRUGS (1)
  1. LOSARTAN. [Suspect]
     Active Substance: LOSARTAN
     Indication: HYPERLIPIDAEMIA
     Route: 048

REACTIONS (4)
  - Palpitations [None]
  - Atrial fibrillation [None]
  - Atrial flutter [None]
  - Tachycardia [None]

NARRATIVE: CASE EVENT DATE: 20161021
